FAERS Safety Report 12221671 (Version 8)
Quarter: 2017Q1

REPORT INFORMATION
  Report Type: Spontaneous
  Country: US (occurrence: US)
  Receive Date: 20160330
  Receipt Date: 20170120
  Transmission Date: 20170428
  Serious: Yes (Congenital Anomaly, Other)
  Sender: FDA-Public Use
  Company Number: PHEH2016US007465

PATIENT
  Sex: Male

DRUGS (3)
  1. ONDANSETRON. [Suspect]
     Active Substance: ONDANSETRON
     Indication: FOETAL EXPOSURE DURING PREGNANCY
     Dosage: MOTHER^S DOSE: 4 MG, TWICE A DAY (BID)
     Route: 064
  2. ZOFRAN [Suspect]
     Active Substance: ONDANSETRON HYDROCHLORIDE
     Indication: FOETAL EXPOSURE DURING PREGNANCY
     Route: 064
  3. ONDANSETRON HYDROCHLORIDE. [Suspect]
     Active Substance: ONDANSETRON HYDROCHLORIDE
     Indication: FOETAL EXPOSURE DURING PREGNANCY
     Dosage: MOTHER^S DOSE: 4 MG
     Route: 064

REACTIONS (16)
  - Hypertonia [Unknown]
  - Congenital anomaly [Unknown]
  - Microcephaly [Unknown]
  - Ankyloglossia congenital [Unknown]
  - Deafness [Unknown]
  - Cleft palate [Unknown]
  - Congenital hearing disorder [Unknown]
  - Injury [Unknown]
  - Foetal exposure during pregnancy [Unknown]
  - Velopharyngeal incompetence [Unknown]
  - Deformity [Unknown]
  - Cleft lip [Unknown]
  - Developmental delay [Unknown]
  - Dysmorphism [Unknown]
  - Dwarfism [Unknown]
  - Anxiety [Unknown]
